FAERS Safety Report 8779479 (Version 1)
Quarter: 2012Q4

REPORT INFORMATION
  Report Type: 
  Country: US (occurrence: US)
  Receive Date: 20120912
  Receipt Date: 20120912
  Transmission Date: 20130627
  Serious: No
  Sender: FDA-Public Use
  Company Number: US-BAYER-2012-092175

PATIENT
  Sex: Male

DRUGS (1)
  1. AVELOX [Suspect]

REACTIONS (6)
  - Insomnia [None]
  - Nausea [None]
  - Tremor [None]
  - Burning sensation [None]
  - Myalgia [None]
  - Tendon pain [None]
